FAERS Safety Report 21323998 (Version 1)
Quarter: 2022Q3

REPORT INFORMATION
  Report Type: Spontaneous
  Country: US (occurrence: None)
  Receive Date: 20220910
  Receipt Date: 20220910
  Transmission Date: 20221027
  Serious: Yes (Other)
  Sender: FDA-Public Use
  Company Number: None

PATIENT
  Age: 65 Year
  Sex: Female
  Weight: 87.75 kg

DRUGS (1)
  1. MILK OF MAGNESIA [Suspect]
     Active Substance: MAGNESIUM HYDROXIDE
     Indication: Constipation
     Dosage: OTHER QUANTITY : 1 TABLESPOON(S);?FREQUENCY : EVERY 12 HOURS;?
     Route: 048

REACTIONS (1)
  - Haematochezia [None]

NARRATIVE: CASE EVENT DATE: 20220611
